FAERS Safety Report 4450346-6 (Version None)
Quarter: 2004Q3

REPORT INFORMATION
  Report Type: 
  Country: None (occurrence: None)
  Receive Date: 20040914
  Receipt Date: 20040831
  Transmission Date: 20050211
  Serious: Yes (Death, Hospitalization)
  Sender: FDA-Public Use
  Company Number: 2004AP01197

PATIENT
  Age: 64 Year
  Sex: Male

DRUGS (15)
  1. IRESSA [Suspect]
     Indication: LUNG ADENOCARCINOMA
     Dosage: 250 MG DAILY PO
     Route: 048
     Dates: start: 20031006, end: 20040224
  2. OSTEN [Concomitant]
  3. NORVASC [Concomitant]
  4. TEGRETOL [Concomitant]
  5. GASTER D [Concomitant]
  6. NAIXAN [Concomitant]
  7. AMARYL [Concomitant]
  8. PANTOSIN [Concomitant]
  9. MAGNESIUM OXIDE [Concomitant]
  10. KADIAN [Concomitant]
  11. CARBOPLATIN [Concomitant]
  12. PACLITAXEL [Concomitant]
  13. VINORELBINE TARTRATE [Concomitant]
  14. GEMCITABINE [Concomitant]
  15. RADIOTHERAPY [Concomitant]

REACTIONS (7)
  - ASPIRATION [None]
  - BEDRIDDEN [None]
  - LUNG ADENOCARCINOMA [None]
  - MALIGNANT NEOPLASM PROGRESSION [None]
  - METASTASES TO SPINE [None]
  - MUSCULAR WEAKNESS [None]
  - PNEUMONIA [None]
